FAERS Safety Report 9047423 (Version 1)
Quarter: 2013Q1

REPORT INFORMATION
  Report Type: Spontaneous
  Country: US (occurrence: US)
  Receive Date: 20130131
  Receipt Date: 20130131
  Transmission Date: 20140127
  Serious: Yes (Hospitalization)
  Sender: FDA-Public Use
  Company Number: US-ASTRAZENECA-2013SE04727

PATIENT
  Age: 60 Year
  Sex: Male
  Weight: 139 kg

DRUGS (33)
  1. NEXIUM [Suspect]
     Indication: PROPHYLAXIS AGAINST GASTROINTESTINAL ULCER
     Route: 048
     Dates: start: 20100413, end: 20120913
  2. ZESTRIL [Suspect]
     Indication: HYPERTENSION
     Route: 048
  3. ZESTRIL [Suspect]
     Indication: HYPERTENSION
     Route: 048
     Dates: start: 20120909
  4. XYLOCAINE [Suspect]
     Indication: LOCAL ANAESTHESIA
     Route: 065
  5. AMBIEN [Suspect]
     Indication: SLEEP DISORDER
     Route: 065
  6. LASIX [Suspect]
     Indication: CARDIAC FAILURE CONGESTIVE
     Route: 048
     Dates: start: 20120203
  7. COREG [Suspect]
     Indication: HYPERTENSION
     Route: 048
  8. COREG [Suspect]
     Indication: HYPERTENSION
     Route: 048
     Dates: start: 20120909
  9. FLOMAX [Suspect]
     Indication: BENIGN PROSTATIC HYPERPLASIA
     Route: 048
     Dates: start: 201208
  10. PLACEBO [Suspect]
     Indication: OSTEOARTHRITIS
     Route: 065
     Dates: start: 20100413, end: 20120913
  11. PLACEBO [Suspect]
     Indication: RHEUMATOID ARTHRITIS
     Route: 065
     Dates: start: 20100413, end: 20120913
  12. PLACEBO [Suspect]
     Indication: OSTEOARTHRITIS
     Route: 065
  13. PLACEBO [Suspect]
     Indication: RHEUMATOID ARTHRITIS
     Route: 065
  14. PROSCAR [Concomitant]
  15. VALIUM [Concomitant]
     Indication: ANXIETY
  16. DELTASONE [Concomitant]
  17. ROFLUMILAST [Concomitant]
  18. FLONASE [Concomitant]
     Indication: HYPERSENSITIVITY
  19. PROAIR HFA [Concomitant]
     Indication: CHRONIC OBSTRUCTIVE PULMONARY DISEASE
  20. NIZORAL [Concomitant]
     Indication: PRURITUS
  21. SYNTHROID [Concomitant]
     Indication: HYPOTHYROIDISM
  22. DULERA IN [Concomitant]
  23. REGLAN [Concomitant]
  24. DUONEB [Concomitant]
  25. PLAVIX [Concomitant]
  26. CYMBALTA [Concomitant]
  27. SPIRIVA [Concomitant]
  28. ASPIRIN [Concomitant]
  29. NORCO [Concomitant]
     Indication: PAIN
  30. VYTORIN [Concomitant]
  31. CORDARONE [Concomitant]
  32. CLARITIN [Concomitant]
     Indication: SEASONAL ALLERGY
  33. FISH OIL [Concomitant]

REACTIONS (2)
  - Hypotension [Recovered/Resolved]
  - Blood glucose increased [None]
